FAERS Safety Report 8222274-1 (Version None)
Quarter: 2012Q1

REPORT INFORMATION
  Report Type: 
  Country: None (occurrence: None)
  Receive Date: 20120320
  Receipt Date: 20120313
  Transmission Date: 20120608
  Serious: Yes (Hospitalization)
  Sender: FDA-Public Use
  Company Number: US-GLAXOSMITHKLINE-A0970223A

PATIENT
  Age: 65 Year
  Sex: Female
  Weight: 61 kg

DRUGS (7)
  1. LASIX [Concomitant]
  2. DIGOXIN [Concomitant]
  3. COUMADIN [Concomitant]
  4. ASPIRIN [Concomitant]
  5. OXYGEN [Concomitant]
  6. FLOLAN [Suspect]
     Indication: PULMONARY ARTERIAL HYPERTENSION
     Dosage: 28.7NGKM SEE DOSAGE TEXT
     Route: 042
     Dates: start: 20101025
  7. PLAVIX [Concomitant]

REACTIONS (2)
  - FLUID OVERLOAD [None]
  - BLISTER [None]
